FAERS Safety Report 24722763 (Version 1)
Quarter: 2024Q4

REPORT INFORMATION
  Report Type: Spontaneous
  Country: US (occurrence: None)
  Receive Date: 20241211
  Receipt Date: 20241211
  Transmission Date: 20250115
  Serious: Yes (Death, Life-Threatening)
  Sender: Public
  Company Number: None

PATIENT
  Age: 78 Year
  Sex: Male
  Weight: 40.82 kg

DRUGS (1)
  1. MONTELUKAST SODIUM [Suspect]
     Active Substance: MONTELUKAST\MONTELUKAST SODIUM
     Indication: Asthma
     Dosage: FREQUENCY : DAILY;?
     Route: 048
     Dates: end: 2024

REACTIONS (4)
  - COVID-19 [None]
  - Aggression [None]
  - Weight decreased [None]
  - Abnormal behaviour [None]

NARRATIVE: CASE EVENT DATE: 20221201
